FAERS Safety Report 15964710 (Version 3)
Quarter: 2019Q1

REPORT INFORMATION
  Report Type: Report from Study
  Country: US (occurrence: US)
  Receive Date: 20190215
  Receipt Date: 20190301
  Transmission Date: 20190418
  Serious: Yes (Hospitalization, Other)
  Sender: FDA-Public Use
  Company Number: US-SHIRE-US201905112

PATIENT
  Sex: Male

DRUGS (2)
  1. GATTEX [Suspect]
     Active Substance: TEDUGLUTIDE\WATER
     Indication: SHORT-BOWEL SYNDROME
     Dosage: UNK
     Route: 065
  2. GATTEX [Suspect]
     Active Substance: TEDUGLUTIDE\WATER
     Indication: NEPHROLITHIASIS
     Dosage: 4.4 MILLIGRAM, 1X/DAY:QD
     Route: 058
     Dates: start: 20190206

REACTIONS (4)
  - Pneumonia [Unknown]
  - Septic shock [Unknown]
  - Condition aggravated [Unknown]
  - Cough [Unknown]
